FAERS Safety Report 9288050 (Version 1)
Quarter: 2013Q2

REPORT INFORMATION
  Report Type: Spontaneous
  Country: US (occurrence: None)
  Receive Date: 20130513
  Receipt Date: 20130513
  Transmission Date: 20140414
  Serious: Yes (Hospitalization, Other)
  Sender: FDA-Public Use
  Company Number: None

PATIENT
  Age: 12 Year
  Sex: Male
  Weight: 54.43 kg

DRUGS (1)
  1. TAMIFLU [Suspect]
     Indication: INFLUENZA
     Dosage: 2.5 TEASPOOS TWICE DAILY FOR 5 DAYS BY MOUTH
     Route: 048
     Dates: start: 20121221, end: 20121224

REACTIONS (6)
  - Personality change [None]
  - Abnormal behaviour [None]
  - Aggression [None]
  - Convulsion [None]
  - Altered state of consciousness [None]
  - Dizziness [None]
